FAERS Safety Report 9708743 (Version 2)
Quarter: 2014Q2

REPORT INFORMATION
  Report Type: Report from Study
  Country: ES (occurrence: ES)
  Receive Date: 20131125
  Receipt Date: 20140423
  Transmission Date: 20141212
  Serious: No
  Sender: FDA-Public Use
  Company Number: ES-MERCK-1311ESP006398

PATIENT
  Age: 51 Year
  Sex: Female
  Weight: 77 kg

DRUGS (8)
  1. BOCEPREVIR [Suspect]
     Indication: HEPATITIS C
     Dosage: 200 MG, QD
     Route: 048
     Dates: start: 20131012
  2. PEGINTRON [Suspect]
     Indication: HEPATITIS C
     Dosage: 100 UG/WEEK
     Route: 058
     Dates: start: 20130913
  3. RIBAVIRIN [Suspect]
     Indication: HEPATITIS C
     Dosage: 1200 MG/DAY
     Route: 048
     Dates: start: 20130913
  4. RIBAVIRIN [Suspect]
     Dosage: 1000 MG/DAY
     Dates: start: 20131011
  5. RIBAVIRIN [Suspect]
     Dosage: 600 MG/DAY
  6. ALDACTONE [Concomitant]
     Indication: BILIARY ASCITES
     Dosage: 100 MG, QD
     Route: 048
  7. SUMIAL [Concomitant]
     Indication: VARICES OESOPHAGEAL
     Dosage: 10 MG, BID
     Route: 048
  8. OMEPRAZOLE [Concomitant]
     Dosage: UNK;UNK
     Route: 065

REACTIONS (1)
  - Thrombocytopenia [Recovered/Resolved]
